FAERS Safety Report 8133749-8 (Version None)
Quarter: 2012Q1

REPORT INFORMATION
  Report Type: 
  Country: None (occurrence: None)
  Receive Date: 20120213
  Receipt Date: 20120213
  Transmission Date: 20120608
  Serious: Yes (Hospitalization)
  Sender: FDA-Public Use
  Company Number: None

PATIENT
  Age: 36 Year
  Sex: Female
  Weight: 83.914 kg

DRUGS (1)
  1. TYLENOL COLD AND FLU SEVERE [Suspect]
     Indication: NASOPHARYNGITIS
     Dosage: 2 CAPSELS
     Route: 048
     Dates: start: 20120203, end: 20120204

REACTIONS (1)
  - HYPERSENSITIVITY [None]
